FAERS Safety Report 14075474 (Version 1)
Quarter: 2017Q4

REPORT INFORMATION
  Report Type: Spontaneous
  Country: US (occurrence: US)
  Receive Date: 20171010
  Receipt Date: 20171010
  Transmission Date: 20180321
  Serious: No
  Sender: FDA-Public Use
  Company Number: US-MYLANLABS-2016M1050937

PATIENT
  Age: 69 Year
  Sex: Male

DRUGS (10)
  1. HYDROCHLOROTHIAZIDE/LOSARTAN POTASSIUM [Concomitant]
     Dosage: UNK, QD
     Route: 048
  2. PHYTOSTEROLS NOS [Concomitant]
     Dosage: UNK, QD
  3. AMLODIPINE BESILATE [Concomitant]
     Active Substance: AMLODIPINE BESYLATE
     Dosage: 2.5 MG, QD
     Route: 048
  4. FENTANYL TRANSDERMAL SYSTEM [Suspect]
     Active Substance: FENTANYL
     Indication: PAIN
     Dosage: 75 ?G, QH, CHANGE Q48H
     Route: 062
     Dates: start: 2015
  5. VENLAFAXINE HCL [Suspect]
     Active Substance: VENLAFAXINE HYDROCHLORIDE
     Indication: PRODUCT USED FOR UNKNOWN INDICATION
     Dosage: 37.5 MG, PRN
     Route: 048
     Dates: start: 20161115, end: 20161121
  6. SIMVASTATIN +PHARMA [Concomitant]
     Active Substance: SIMVASTATIN
     Dosage: 20 MG, HS
     Route: 048
  7. OMEPRAZOLE                         /00661202/ [Concomitant]
     Dosage: 20 MG, UNK
  8. ANDROGEL [Concomitant]
     Active Substance: TESTOSTERONE
     Dosage: UNK
  9. ALERTEC [Concomitant]
     Active Substance: MODAFINIL
     Dosage: UNK, QD
  10. NASACORT [Concomitant]
     Active Substance: TRIAMCINOLONE ACETONIDE
     Dosage: UNK

REACTIONS (2)
  - Anxiety [Recovered/Resolved]
  - Withdrawal syndrome [Recovered/Resolved]

NARRATIVE: CASE EVENT DATE: 201611
